FAERS Safety Report 13043725 (Version 1)
Quarter: 2016Q4

REPORT INFORMATION
  Report Type: Spontaneous
  Country: US (occurrence: US)
  Receive Date: 20161219
  Receipt Date: 20161219
  Transmission Date: 20170207
  Serious: Yes (Death)
  Sender: FDA-Public Use
  Company Number: None

PATIENT
  Age: 89 Year
  Sex: Male

DRUGS (16)
  1. CHLORHEXIDINE GLUCONATE. [Concomitant]
     Active Substance: CHLORHEXIDINE GLUCONATE
  2. VITAMIN B-1 [Concomitant]
     Active Substance: THIAMINE
  3. ISOSORBIDE. [Concomitant]
     Active Substance: ISOSORBIDE
  4. REVLIMID [Suspect]
     Active Substance: LENALIDOMIDE
     Indication: PLASMA CELL MYELOMA
     Route: 048
     Dates: start: 20161116, end: 20161121
  5. QVAR/ACTUATION INHL AERO [Concomitant]
  6. CLOPIDOGREL [Concomitant]
     Active Substance: CLOPIDOGREL BISULFATE
  7. CLINDAMYCIN PHOSPHATE. [Concomitant]
     Active Substance: CLINDAMYCIN PHOSPHATE
  8. OMEGA 3-6-9 [Concomitant]
     Active Substance: FISH OIL
  9. NITROSTAT [Concomitant]
     Active Substance: NITROGLYCERIN
  10. BUPROPION. [Concomitant]
     Active Substance: BUPROPION
  11. FLUTICASONE/ACTUATION NASL SPSN [Concomitant]
  12. PROAIR HFA/ACTUATION INHL HFAA [Concomitant]
  13. ASPIRIN. [Concomitant]
     Active Substance: ASPIRIN
  14. LOVASTATIN. [Concomitant]
     Active Substance: LOVASTATIN
  15. AEROCHAMBER PLUS FLOW-VU MISC SPCT [Concomitant]
  16. BETAMETHASONE. [Concomitant]
     Active Substance: BETAMETHASONE

REACTIONS (3)
  - Asthenia [None]
  - Disease progression [None]
  - Constipation [None]

NARRATIVE: CASE EVENT DATE: 20161219
